FAERS Safety Report 7250699-X (Version None)
Quarter: 2011Q1

REPORT INFORMATION
  Report Type: 
  Country: None (occurrence: None)
  Receive Date: 20110128
  Receipt Date: 20110121
  Transmission Date: 20110831
  Serious: Yes (Hospitalization)
  Sender: FDA-Public Use
  Company Number: PHHY2011US05181

PATIENT
  Sex: Female
  Weight: 73 kg

DRUGS (1)
  1. EXJADE [Suspect]
     Indication: SICKLE CELL ANAEMIA WITH CRISIS
     Dosage: 2000 MG, DAILY
     Route: 048

REACTIONS (2)
  - FOOT FRACTURE [None]
  - ANKLE FRACTURE [None]
